FAERS Safety Report 6681154-3 (Version None)
Quarter: 2010Q2

REPORT INFORMATION
  Report Type: 
  Country: None (occurrence: None)
  Receive Date: 20100414
  Receipt Date: 20100409
  Transmission Date: 20101027
  Serious: Yes (Other)
  Sender: FDA-Public Use
  Company Number: BR-ROCHE-696548

PATIENT
  Sex: Female
  Weight: 94 kg

DRUGS (2)
  1. CLONAZEPAM [Suspect]
     Indication: SLEEP DISORDER THERAPY
     Dosage: DRUG TAKEN AT 21:00
     Route: 048
     Dates: start: 19900101
  2. DONAREN [Concomitant]
     Indication: SLEEP DISORDER THERAPY
     Dosage: DRUG REPORTED AS DONAREN RETARD, ONCE A DAY AT 21:00
     Dates: start: 20091101

REACTIONS (3)
  - COUGH [None]
  - INFLUENZA [None]
  - RENAL FAILURE [None]
